FAERS Safety Report 9075213 (Version 1)
Quarter: 2013Q1

REPORT INFORMATION
  Report Type: Report from Study
  Country: US (occurrence: US)
  Receive Date: 20130129
  Receipt Date: 20130129
  Transmission Date: 20140127
  Serious: No
  Sender: FDA-Public Use
  Company Number: US-ABBOTT-12P-163-0923042-00

PATIENT
  Sex: Female
  Weight: 88.08 kg

DRUGS (7)
  1. HUMIRA 40 MG/0.8 ML PEN [Suspect]
     Indication: ANKYLOSING SPONDYLITIS
     Dates: start: 2009
  2. HUMIRA 40 MG/0.8 ML PEN [Suspect]
     Indication: CROHN^S DISEASE
  3. METHOTREXATE [Suspect]
     Indication: PSORIATIC ARTHROPATHY
     Dates: end: 201203
  4. METHOTREXATE [Suspect]
     Indication: CROHN^S DISEASE
  5. IMURAN [Concomitant]
     Indication: CROHN^S DISEASE
  6. METHYLFOLATE [Concomitant]
     Indication: MACROCYTOSIS
  7. ASACOL [Concomitant]
     Indication: CROHN^S DISEASE

REACTIONS (3)
  - Lethargy [Not Recovered/Not Resolved]
  - Dry eye [Not Recovered/Not Resolved]
  - Abdominal pain [Not Recovered/Not Resolved]
